FAERS Safety Report 9463850 (Version 1)
Quarter: 2013Q3

REPORT INFORMATION
  Report Type: Spontaneous
  Country: US (occurrence: US)
  Receive Date: 20130819
  Receipt Date: 20130819
  Transmission Date: 20140515
  Serious: Yes (Other)
  Sender: FDA-Public Use
  Company Number: US-PFIZER INC-2013236427

PATIENT
  Age: 68 Year
  Sex: Female
  Weight: 90.7 kg

DRUGS (3)
  1. CELEBREX [Suspect]
     Indication: PAIN
     Dosage: 200 MG, 2X/DAY
     Route: 048
  2. TOVIAZ [Suspect]
     Dosage: 40 MG, 1X/DAY
     Route: 048
  3. CELEXA [Concomitant]
     Dosage: 40 MG, UNK

REACTIONS (4)
  - Haematopoietic neoplasm [Unknown]
  - Fall [Unknown]
  - Upper limb fracture [Unknown]
  - Breast disorder female [Unknown]
